FAERS Safety Report 14088063 (Version 2)
Quarter: 2017Q4

REPORT INFORMATION
  Report Type: Report from Study
  Country: JP (occurrence: JP)
  Receive Date: 20171013
  Receipt Date: 20171020
  Transmission Date: 20180321
  Serious: Yes (Death, Life-Threatening, Hospitalization)
  Sender: FDA-Public Use
  Company Number: JP-DSJP-DSJ-2017-129508

PATIENT

DRUGS (10)
  1. URSO [Concomitant]
     Active Substance: URSODIOL
     Dosage: 300MG/DAY
     Route: 048
     Dates: end: 20170819
  2. EDOXABAN [Suspect]
     Active Substance: EDOXABAN TOSYLATE
     Indication: ATRIAL FIBRILLATION
     Dosage: 30 MG, QD
     Route: 048
     Dates: start: 20150714, end: 20170727
  3. MAINTATE [Concomitant]
     Active Substance: BISOPROLOL FUMARATE
     Indication: ATRIAL FIBRILLATION
     Dosage: 0.625MG/DAY
     Route: 048
     Dates: end: 20170819
  4. ROCEPHIN [Concomitant]
     Active Substance: CEFTRIAXONE SODIUM
     Dosage: 2G/DAY
     Route: 042
     Dates: start: 20170819, end: 20170825
  5. LANIRAPID [Concomitant]
     Active Substance: METILDIGOXIN
     Indication: ATRIAL FIBRILLATION
     Dosage: 0.05MG/DAY
     Route: 048
     Dates: end: 20170819
  6. TAKEPRON [Concomitant]
     Active Substance: LANSOPRAZOLE
     Dosage: 15MG/DAY
     Route: 048
     Dates: end: 20170819
  7. TIENAM [Concomitant]
     Active Substance: CILASTATIN SODIUM\IMIPENEM
     Dosage: 1G/DAY
     Route: 042
     Dates: start: 20170825, end: 20170908
  8. DIART [Concomitant]
     Active Substance: AZOSEMIDE
     Dosage: 30MG/DAY
     Route: 048
     Dates: end: 20170819
  9. CASODEX [Concomitant]
     Active Substance: BICALUTAMIDE
     Dosage: 80MG/DAY
     Route: 048
     Dates: end: 20170819
  10. ALDACTONE A [Concomitant]
     Active Substance: SPIRONOLACTONE
     Dosage: 25MG/DAY
     Route: 048
     Dates: end: 20170819

REACTIONS (6)
  - General physical health deterioration [Fatal]
  - Disseminated intravascular coagulation [Fatal]
  - Pneumonia aspiration [Fatal]
  - Peripheral artery thrombosis [Not Recovered/Not Resolved]
  - Embolism arterial [Not Recovered/Not Resolved]
  - Large intestinal haemorrhage [Recovering/Resolving]

NARRATIVE: CASE EVENT DATE: 20170726
